FAERS Safety Report 8841419 (Version 2)
Quarter: 2012Q4

REPORT INFORMATION
  Report Type: 
  Country: US (occurrence: US)
  Receive Date: 20121015
  Receipt Date: 20121031
  Transmission Date: 20130627
  Serious: Yes (Other)
  Sender: FDA-Public Use
  Company Number: US-009507513-1210USA005427

PATIENT

DRUGS (2)
  1. JANUMET [Suspect]
     Indication: GLUCOSE TOLERANCE IMPAIRED
     Dosage: 50mg/500mg
     Route: 048
     Dates: start: 201010
  2. LISINOPRIL [Concomitant]
     Dosage: 20 mg
     Dates: start: 201010

REACTIONS (1)
  - Renal failure [Unknown]
